FAERS Safety Report 6043898-6 (Version None)
Quarter: 2009Q1

REPORT INFORMATION
  Report Type: 
  Country: None (occurrence: None)
  Receive Date: 20090120
  Receipt Date: 20090112
  Transmission Date: 20090719
  Serious: Yes (Hospitalization)
  Sender: FDA-Public Use
  Company Number: US-BIOGENIDEC-2008BI013770

PATIENT
  Age: 51 Year
  Sex: Female

DRUGS (2)
  1. AVONEX [Suspect]
     Indication: MULTIPLE SCLEROSIS
     Route: 030
     Dates: start: 19990601, end: 20070501
  2. AVONEX [Suspect]
     Route: 030
     Dates: start: 20070901

REACTIONS (6)
  - BURNING SENSATION [None]
  - DRUG INTOLERANCE [None]
  - GOITRE [None]
  - INFLUENZA LIKE ILLNESS [None]
  - THYROID DISORDER [None]
  - THYROID FUNCTION TEST ABNORMAL [None]
